APPROVED DRUG PRODUCT: ECONOPRED
Active Ingredient: PREDNISOLONE ACETATE
Strength: 0.125%
Dosage Form/Route: SUSPENSION/DROPS;OPHTHALMIC
Application: N017468 | Product #001
Applicant: HARROW EYE LLC
Approved: Approved Prior to Jan 1, 1982 | RLD: No | RS: No | Type: DISCN